FAERS Safety Report 4855440-3 (Version None)
Quarter: 2005Q4

REPORT INFORMATION
  Report Type: 
  Country: None (occurrence: None)
  Receive Date: 20051125
  Receipt Date: 20050627
  Transmission Date: 20060501
  Serious: Yes (Hospitalization)
  Sender: FDA-Public Use
  Company Number: 2005-BP-10925BP

PATIENT
  Sex: 0

DRUGS (3)
  1. AGGRENOX [Suspect]
     Indication: CEREBROVASCULAR ACCIDENT PROPHYLAXIS
     Dosage: ONE CAPSULE BID (SEE TEXT, 50MG/ 400MG), PO
     Route: 048
  2. AGGRENOX [Suspect]
     Indication: PROPHYLAXIS
     Dosage: ONE CAPSULE BID (SEE TEXT, 50MG/ 400MG), PO
     Route: 048
  3. AGGRENOX [Suspect]
     Indication: TRANSIENT ISCHAEMIC ATTACK
     Dosage: ONE CAPSULE BID (SEE TEXT, 50MG/ 400MG), PO
     Route: 048

REACTIONS (1)
  - HEADACHE [None]
